FAERS Safety Report 20124804 (Version 1)
Quarter: 2021Q4

REPORT INFORMATION
  Report Type: Spontaneous
  Country: US (occurrence: None)
  Receive Date: 20211126
  Receipt Date: 20211126
  Transmission Date: 20220303
  Serious: Yes (Hospitalization)
  Sender: FDA-Public Use
  Company Number: None

PATIENT
  Age: 69 Year
  Sex: Male
  Weight: 85 kg

DRUGS (1)
  1. CEFEPIME HYDROCHLORIDE [Suspect]
     Active Substance: CEFEPIME HYDROCHLORIDE
     Indication: Osteomyelitis
     Dosage: OTHER STRENGTH : 1GM/VIL;?
     Dates: start: 20211023, end: 20211101

REACTIONS (3)
  - Nausea [None]
  - Vomiting [None]
  - Asthenia [None]

NARRATIVE: CASE EVENT DATE: 20211030
